FAERS Safety Report 11267126 (Version 2)
Quarter: 2015Q3

REPORT INFORMATION
  Report Type: Spontaneous
  Country: GB (occurrence: GB)
  Receive Date: 20150713
  Receipt Date: 20150715
  Transmission Date: 20151125
  Serious: Yes (Other)
  Sender: FDA-Public Use
  Company Number: GB-DSJP-DSU-2015-122114

PATIENT

DRUGS (9)
  1. CHOLESTAGEL [Suspect]
     Active Substance: COLESEVELAM HYDROCHLORIDE
     Dosage: 5 DF, QD
     Route: 048
     Dates: start: 2015
  2. MINERALS [Concomitant]
     Active Substance: MINERALS
     Indication: MALABSORPTION
  3. CHOLESTAGEL [Suspect]
     Active Substance: COLESEVELAM HYDROCHLORIDE
     Dosage: 2 DF, QD
     Route: 048
     Dates: start: 2013
  4. VITAMINS [Concomitant]
     Active Substance: VITAMINS
     Indication: PRODUCT USED FOR UNKNOWN INDICATION
  5. THYROXIN [Concomitant]
     Active Substance: LEVOTHYROXINE
     Dosage: UNK
  6. CHOLESTAGEL [Suspect]
     Active Substance: COLESEVELAM HYDROCHLORIDE
     Dosage: 3 DF, QD
     Route: 048
     Dates: start: 2013
  7. B12 VITAMIN [Concomitant]
     Indication: PRODUCT USED FOR UNKNOWN INDICATION
     Dosage: UNK
  8. CHOLESTAGEL [Suspect]
     Active Substance: COLESEVELAM HYDROCHLORIDE
     Indication: MALABSORPTION
     Dosage: 1 DF, QD
     Route: 048
     Dates: start: 2011
  9. CHOLESTAGEL [Suspect]
     Active Substance: COLESEVELAM HYDROCHLORIDE
     Dosage: 1 DF, QD
     Route: 048
     Dates: start: 2013

REACTIONS (5)
  - Constipation [Unknown]
  - Off label use [Unknown]
  - Colon cancer [Unknown]
  - Diarrhoea [Unknown]
  - Haemorrhage [Unknown]

NARRATIVE: CASE EVENT DATE: 201411
